FAERS Safety Report 4375936-0 (Version None)
Quarter: 2004Q2

REPORT INFORMATION
  Report Type: 
  Country: None (occurrence: None)
  Receive Date: 20040611
  Receipt Date: 20031216
  Transmission Date: 20050107
  Serious: Yes (Life-Threatening, Hospitalization, Congenital Anomaly)
  Sender: FDA-Public Use
  Company Number: PHNU2003DE04441

PATIENT
  Age: 0 Day
  Sex: Male
  Weight: 3 kg

DRUGS (2)
  1. TRILEPTAL [Suspect]
     Route: 064
  2. ERGENYL CHRONO [Suspect]
     Route: 064

REACTIONS (23)
  - ANORECTAL DISORDER [None]
  - ARNOLD-CHIARI MALFORMATION [None]
  - CAESAREAN SECTION [None]
  - CARDIAC MURMUR [None]
  - CEREBRAL VENTRICLE DILATATION [None]
  - CEREBROSPINAL FLUID LEAKAGE [None]
  - CONGENITAL ATRIAL SEPTAL DEFECT [None]
  - CONGENITAL INTESTINAL MALFORMATION [None]
  - DERMATITIS [None]
  - DRUG EXPOSURE DURING PREGNANCY [None]
  - ENCEPHALOCELE [None]
  - EYELID DISORDER [None]
  - FACIAL DYSMORPHISM [None]
  - HYDROCEPHALUS [None]
  - HYPOSPADIAS [None]
  - JOINT RANGE OF MOTION DECREASED [None]
  - MATERNAL DRUGS AFFECTING FOETUS [None]
  - MENINGOCELE [None]
  - MENINGOMYELOCELE [None]
  - NEURAL TUBE DEFECT [None]
  - SPINA BIFIDA [None]
  - SPINE MALFORMATION [None]
  - TALIPES [None]
